FAERS Safety Report 16397495 (Version 2)
Quarter: 2019Q4

REPORT INFORMATION
  Report Type: Spontaneous
  Country: US (occurrence: US)
  Receive Date: 20190606
  Receipt Date: 20191014
  Transmission Date: 20200122
  Serious: Yes (Hospitalization, Other)
  Sender: FDA-Public Use
  Company Number: US-SUN PHARMACEUTICAL INDUSTRIES LTD-2019R1-209808

PATIENT
  Age: 35 Year
  Sex: Female

DRUGS (1)
  1. NAPROXEN. [Suspect]
     Active Substance: NAPROXEN
     Indication: PRODUCT USED FOR UNKNOWN INDICATION
     Dosage: 30 GRAM
     Route: 048

REACTIONS (6)
  - Metabolic acidosis [Recovered/Resolved]
  - Mental disorder [Recovered/Resolved]
  - Overdose [Recovered/Resolved]
  - Toxicity to various agents [Recovered/Resolved]
  - Toxic encephalopathy [Recovered/Resolved]
  - Seizure [Recovered/Resolved]
